FAERS Safety Report 5850925-5 (Version None)
Quarter: 2008Q3

REPORT INFORMATION
  Report Type: 
  Country: None (occurrence: None)
  Receive Date: 20080820
  Receipt Date: 20080811
  Transmission Date: 20090109
  Serious: Yes (Other)
  Sender: FDA-Public Use
  Company Number: PHBS2008JP05376

PATIENT
  Age: 36 Year
  Sex: Female

DRUGS (8)
  1. CYCLOSPORINE [Suspect]
     Indication: CORD BLOOD TRANSPLANT THERAPY
     Dosage: 150MG/DAY
  2. CYCLOSPORINE [Suspect]
     Indication: PROPHYLAXIS AGAINST GRAFT VERSUS HOST DISEASE
  3. PREDNISOLONE [Concomitant]
     Indication: PROPHYLAXIS AGAINST GRAFT VERSUS HOST DISEASE
     Dosage: 45 MG/DAY
     Dates: start: 20050101
  4. METHOTREXATE SODIUM [Concomitant]
     Indication: PROPHYLAXIS AGAINST GRAFT VERSUS HOST DISEASE
     Dosage: 15 MG, QD
     Route: 042
     Dates: start: 20050101
  5. METHOTREXATE SODIUM [Concomitant]
     Dosage: 10 MG, QD
     Route: 042
  6. METHOTREXATE SODIUM [Concomitant]
     Dosage: 10 MG, QD
     Route: 042
  7. CYCLOPHOSPHAMIDE [Concomitant]
     Indication: CORD BLOOD TRANSPLANT THERAPY
     Dosage: 3000MG/DAY
     Dates: start: 20050101
  8. RADIOTHERAPY [Concomitant]
     Indication: CORD BLOOD TRANSPLANT THERAPY
     Dosage: 4GY/DAY

REACTIONS (7)
  - ACUTE GRAFT VERSUS HOST DISEASE [None]
  - ANAEMIA [None]
  - COUGH [None]
  - MALAISE [None]
  - MASS [None]
  - PYREXIA [None]
  - THROMBOCYTHAEMIA [None]
